FAERS Safety Report 5508554-9 (Version None)
Quarter: 2007Q4

REPORT INFORMATION
  Report Type: 
  Country: None (occurrence: None)
  Receive Date: 20071105
  Receipt Date: 20071019
  Transmission Date: 20080405
  Serious: Yes (Hospitalization)
  Sender: FDA-Public Use
  Company Number: DSA_30823_2007

PATIENT
  Sex: Female

DRUGS (2)
  1. TEMESTA (TEMESTA - LORAZEPAM) (0.5 MG, ) (NOT SPECIFIED) [Suspect]
     Indication: SLEEP DISORDER
     Dosage: (0.5 MG QD ORAL, (0.5 MG QD DIFFERENT LOT ORAL)
     Route: 048
     Dates: start: 20020101
  2. TEMESTA (TEMESTA - LORAZEPAM) (0.5 MG, ) (NOT SPECIFIED) [Suspect]
     Indication: SLEEP DISORDER
     Dosage: (0.5 MG QD ORAL, (0.5 MG QD DIFFERENT LOT ORAL)
     Route: 048
     Dates: start: 20020101

REACTIONS (2)
  - NAUSEA [None]
  - PALPITATIONS [None]
